FAERS Safety Report 12621652 (Version 1)
Quarter: 2016Q3

REPORT INFORMATION
  Report Type: Spontaneous
  Country: CA (occurrence: CA)
  Receive Date: 20160804
  Receipt Date: 20160804
  Transmission Date: 20161109
  Serious: Yes (Other)
  Sender: FDA-Public Use
  Company Number: CA-SYNEX-T201600332

PATIENT
  Sex: Male

DRUGS (1)
  1. INOMAX [Suspect]
     Active Substance: NITRIC OXIDE
     Indication: OXYGEN SATURATION DECREASED
     Dosage: 20 PPM, CONTINUOUS

REACTIONS (4)
  - Medication error [Recovered/Resolved]
  - Off label use [Unknown]
  - Oxygen saturation decreased [Recovered/Resolved]
  - Device issue [Recovered/Resolved]
